FAERS Safety Report 23726384 (Version 1)
Quarter: 2024Q2

REPORT INFORMATION
  Report Type: Spontaneous
  Country: CN (occurrence: CN)
  Receive Date: 20240410
  Receipt Date: 20240410
  Transmission Date: 20240716
  Serious: No
  Sender: FDA-Public Use
  Company Number: CN-BoehringerIngelheim-2024-BI-020315

PATIENT
  Age: 24 Year
  Sex: Female

DRUGS (4)
  1. SPESOLIMAB [Suspect]
     Active Substance: SPESOLIMAB
     Indication: Pustular psoriasis
  2. PREDNISONE [Concomitant]
     Active Substance: PREDNISONE
     Indication: Product used for unknown indication
  3. PREDNISONE [Concomitant]
     Active Substance: PREDNISONE
  4. PREDNISONE [Concomitant]
     Active Substance: PREDNISONE
     Dosage: GRADUALLY DECREASED (REDUCED DOSE BY 5 MG EVERY?THREE DAYS UNTIL 30 MG AND REDUCED BY 2.5 MG EVERY W

REACTIONS (1)
  - Maternal exposure during pregnancy [Unknown]
